FAERS Safety Report 13625793 (Version 6)
Quarter: 2018Q2

REPORT INFORMATION
  Report Type: Spontaneous
  Country: DE (occurrence: DE)
  Receive Date: 20170608
  Receipt Date: 20180529
  Transmission Date: 20180711
  Serious: Yes (Life-Threatening, Hospitalization, Other)
  Sender: FDA-Public Use
  Company Number: DE-AUROBINDO-AUR-APL-2017-35322

PATIENT
  Age: 19 Year
  Sex: Female

DRUGS (1)
  1. VENLAFAXINE [Suspect]
     Active Substance: VENLAFAXINE HYDROCHLORIDE
     Indication: SUICIDE ATTEMPT
     Dosage: 18 G, UNK
     Route: 048

REACTIONS (18)
  - Ventricular tachyarrhythmia [Recovered/Resolved]
  - Acute kidney injury [Recovering/Resolving]
  - Suicide attempt [Recovered/Resolved]
  - Generalised tonic-clonic seizure [Unknown]
  - Disseminated intravascular coagulation [Unknown]
  - Hypothermia [Unknown]
  - Cardiogenic shock [Recovered/Resolved]
  - Toxicity to various agents [Recovering/Resolving]
  - Acute hepatic failure [Recovering/Resolving]
  - Ventricular tachycardia [Recovered/Resolved]
  - Anuria [Recovered/Resolved]
  - Loss of consciousness [Recovered/Resolved]
  - Gastrointestinal haemorrhage [Unknown]
  - Cardiac arrest [Recovered/Resolved]
  - Stress cardiomyopathy [Recovered/Resolved]
  - Multiple organ dysfunction syndrome [Recovering/Resolving]
  - Lactic acidosis [Recovered/Resolved]
  - Intentional overdose [Recovered/Resolved]
